FAERS Safety Report 19151089 (Version 1)
Quarter: 2021Q2

REPORT INFORMATION
  Report Type: Spontaneous
  Country: CA (occurrence: CA)
  Receive Date: 20210419
  Receipt Date: 20210419
  Transmission Date: 20210717
  Serious: Yes (Hospitalization)
  Sender: FDA-Public Use
  Company Number: CA-TEVA-2021-CA-1901133

PATIENT
  Age: 68 Year
  Sex: Male

DRUGS (5)
  1. NAPROXEN. [Suspect]
     Active Substance: NAPROXEN
     Dosage: 500 MILLIGRAM DAILY;
  2. MYRBETRIQ [Concomitant]
     Active Substance: MIRABEGRON
  3. LIPITOR [Concomitant]
     Active Substance: ATORVASTATIN CALCIUM
     Route: 065
  4. FLOMAX [Concomitant]
     Active Substance: TAMSULOSIN HYDROCHLORIDE
  5. ASA [Concomitant]
     Active Substance: ASPIRIN

REACTIONS (1)
  - Gastric ulcer haemorrhage [Recovering/Resolving]
